FAERS Safety Report 20684333 (Version 2)
Quarter: 2023Q1

REPORT INFORMATION
  Report Type: Report from Study
  Country: US (occurrence: US)
  Receive Date: 20220407
  Receipt Date: 20230307
  Transmission Date: 20230417
  Serious: Yes (Other)
  Sender: FDA-Public Use
  Company Number: US-TAKEDA-2021TUS078623

PATIENT
  Age: 41 Year
  Sex: Female
  Weight: 81.633 kg

DRUGS (22)
  1. HUMAN IMMUNOGLOBULIN G [Suspect]
     Active Substance: HUMAN IMMUNOGLOBULIN G
     Indication: Immunodeficiency common variable
     Dosage: 10 GRAM, 1/WEEK
     Route: 058
     Dates: start: 20211009
  2. ACETAMINOPHEN [Concomitant]
     Active Substance: ACETAMINOPHEN
  3. DIPHENHYDRAMINE [Concomitant]
     Active Substance: DIPHENHYDRAMINE
  4. EPINEPHRINE [Concomitant]
     Active Substance: EPINEPHRINE
  5. Lmx [Concomitant]
  6. FAMOTIDINE [Concomitant]
     Active Substance: FAMOTIDINE
  7. TRAZODONE [Concomitant]
     Active Substance: TRAZODONE HYDROCHLORIDE
  8. LOPRESSOR [Concomitant]
     Active Substance: METOPROLOL TARTRATE
  9. RITUXAN [Concomitant]
     Active Substance: RITUXIMAB
  10. TOPAMAX [Concomitant]
     Active Substance: TOPIRAMATE
  11. PREDNISONE [Concomitant]
     Active Substance: PREDNISONE
  12. BUDESONIDE [Concomitant]
     Active Substance: BUDESONIDE
  13. HIZENTRA [Concomitant]
     Active Substance: HUMAN IMMUNOGLOBULIN G
  14. PROTONIX [Concomitant]
     Active Substance: PANTOPRAZOLE SODIUM
  15. ATORVASTATIN CALCIUM [Concomitant]
     Active Substance: ATORVASTATIN CALCIUM
  16. AZITHROMYCIN [Concomitant]
     Active Substance: AZITHROMYCIN
  17. CYMBALTA [Concomitant]
     Active Substance: DULOXETINE HYDROCHLORIDE
  18. LEVOFLOXACIN [Concomitant]
     Active Substance: LEVOFLOXACIN
  19. CELLCEPT [Concomitant]
     Active Substance: MYCOPHENOLATE MOFETIL
  20. ATORVASTATIN [Concomitant]
     Active Substance: ATORVASTATIN
  21. BUDESONIDE ALMUS [Concomitant]
  22. VALTREX [Concomitant]
     Active Substance: VALACYCLOVIR HYDROCHLORIDE

REACTIONS (4)
  - Pneumonia [Unknown]
  - Respiratory tract infection [Recovering/Resolving]
  - Migraine [Unknown]
  - Insurance issue [Unknown]

NARRATIVE: CASE EVENT DATE: 20220320
